FAERS Safety Report 5658512-9 (Version None)
Quarter: 2008Q1

REPORT INFORMATION
  Report Type: 
  Country: None (occurrence: None)
  Receive Date: 20080310
  Receipt Date: 20070504
  Transmission Date: 20080703
  Serious: No
  Sender: FDA-Public Use
  Company Number: US-BAYER-200710612BCC

PATIENT
  Age: 64 Year
  Sex: Male
  Weight: 68 kg

DRUGS (1)
  1. ALEVE [Suspect]
     Indication: BACK PAIN
     Dosage: TOTAL DAILY DOSE: 440 MG  UNIT DOSE: 220 MG
     Route: 048
     Dates: start: 20070203, end: 20070217

REACTIONS (3)
  - EYE INFECTION BACTERIAL [None]
  - EYE SWELLING [None]
  - OCULAR HYPERAEMIA [None]
